FAERS Safety Report 5385288-5 (Version None)
Quarter: 2007Q3

REPORT INFORMATION
  Report Type: 
  Country: None (occurrence: None)
  Receive Date: 20070709
  Receipt Date: 20070627
  Transmission Date: 20080115
  Serious: Yes (Hospitalization)
  Sender: FDA-Public Use
  Company Number: 2007325409

PATIENT
  Age: 2 Year
  Sex: Male
  Weight: 16.3 kg

DRUGS (2)
  1. BENADRYL [Suspect]
     Dosage: 3/4 OF A 4 OZ BOTTLE ONCE (1 IN 1 D), ORAL
     Route: 048
     Dates: start: 20070626, end: 20070626
  2. FLUORIDE (FLUORIDE) [Concomitant]

REACTIONS (4)
  - ACCIDENTAL DRUG INTAKE BY CHILD [None]
  - DYSURIA [None]
  - RESTLESSNESS [None]
  - SOMNOLENCE [None]
